FAERS Safety Report 4915843-5 (Version None)
Quarter: 2006Q1

REPORT INFORMATION
  Report Type: 
  Country: None (occurrence: None)
  Receive Date: 20060214
  Receipt Date: 20060203
  Transmission Date: 20060701
  Serious: No
  Sender: FDA-Public Use
  Company Number: 2014

PATIENT
  Age: 16 Year
  Sex: Female

DRUGS (1)
  1. AMNESTEEM [Suspect]
     Indication: ACNE
     Dosage: 40MG, TWICE PER WEEK, PO
     Route: 048
     Dates: start: 20040621, end: 20060103

REACTIONS (1)
  - HYPERTHYROIDISM [None]
